FAERS Safety Report 5614606-5 (Version None)
Quarter: 2008Q1

REPORT INFORMATION
  Report Type: 
  Country: None (occurrence: None)
  Receive Date: 20080111
  Receipt Date: 20070925
  Transmission Date: 20080703
  Serious: Yes (Hospitalization, Other)
  Sender: FDA-Public Use
  Company Number: HQ3432922JUL2002

PATIENT
  Age: 58 Year
  Sex: Female
  Weight: 50.39 kg

DRUGS (7)
  1. PREMPRO [Suspect]
     Indication: HORMONE REPLACEMENT THERAPY
     Dosage: 0.625MG / 2.5MG, ORAL
     Route: 048
     Dates: start: 20010601, end: 20020601
  2. PREMARIN [Suspect]
     Dosage: UNSPECIFIED DOSAGE, ORAL
     Route: 048
     Dates: start: 19910101, end: 20010101
  3. PROVERA [Suspect]
     Dosage: ORAL
     Route: 048
     Dates: start: 19910101, end: 20010101
  4. ALBUTEROL [Concomitant]
  5. ASPIRIN [Concomitant]
  6. METAPROTERENOL SULFATE (ORCIPRENALINE SULFATE) [Concomitant]
  7. SPIRIVA [Concomitant]

REACTIONS (2)
  - BREAST CANCER FEMALE [None]
  - BREAST PAIN [None]
